FAERS Safety Report 19436189 (Version 1)
Quarter: 2021Q2

REPORT INFORMATION
  Report Type: Spontaneous
  Country: US (occurrence: US)
  Receive Date: 20210618
  Receipt Date: 20210618
  Transmission Date: 20210717
  Serious: Yes (Other)
  Sender: FDA-Public Use
  Company Number: US-ASTRAZENECA-2021A526045

PATIENT
  Age: 720 Month
  Sex: Female
  Weight: 114.3 kg

DRUGS (5)
  1. NASAL SPRAY [Concomitant]
     Active Substance: UNSPECIFIED INGREDIENT
  2. VITAMIN D [Concomitant]
     Active Substance: VITAMIN D NOS
  3. IRON INFUSIONS [Concomitant]
     Active Substance: IRON
  4. SYMBICORT [Suspect]
     Active Substance: BUDESONIDE\FORMOTEROL FUMARATE DIHYDRATE
     Indication: ASTHMA
     Dosage: TWO TIMES A DAY
     Route: 055
  5. CALTRATE SUPPLEMENT [Concomitant]

REACTIONS (4)
  - Osteopenia [Not Recovered/Not Resolved]
  - Intervertebral disc protrusion [Not Recovered/Not Resolved]
  - Pneumonia [Recovered/Resolved]
  - Spinal cord compression [Not Recovered/Not Resolved]

NARRATIVE: CASE EVENT DATE: 201902
